FAERS Safety Report 7193715-6 (Version None)
Quarter: 2010Q4

REPORT INFORMATION
  Report Type: 
  Country: None (occurrence: None)
  Receive Date: 20101223
  Receipt Date: 20101212
  Transmission Date: 20110411
  Serious: Yes (Disabling, Other)
  Sender: FDA-Public Use
  Company Number: ZA-CELGENEUS-143-21880-10120065

PATIENT
  Sex: Male

DRUGS (7)
  1. REVLIMID [Suspect]
     Route: 048
     Dates: start: 20080301
  2. REVLIMID [Suspect]
     Route: 048
     Dates: start: 20080701, end: 20090301
  3. THALIDOMIDE [Suspect]
     Route: 048
     Dates: start: 20060401, end: 20090301
  4. VELCADE [Suspect]
     Route: 051
     Dates: start: 20080101
  5. ENDOXAN [Suspect]
     Route: 048
  6. DEXAMETHASONE [Suspect]
     Route: 051
     Dates: start: 20060401
  7. ZOMETA [Suspect]
     Route: 051
     Dates: start: 20060401

REACTIONS (8)
  - AMNESIA [None]
  - ARTHRALGIA [None]
  - ASTHENIA [None]
  - BONE PAIN [None]
  - ENCEPHALOPATHY [None]
  - MYALGIA [None]
  - NEUROPATHY PERIPHERAL [None]
  - NO THERAPEUTIC RESPONSE [None]
